FAERS Safety Report 4407306-0 (Version None)
Quarter: 2004Q3

REPORT INFORMATION
  Report Type: 
  Country: None (occurrence: None)
  Receive Date: 20040721
  Receipt Date: 20040708
  Transmission Date: 20050211
  Serious: Yes (Hospitalization)
  Sender: FDA-Public Use
  Company Number: US-JNJFOC-20040702273

PATIENT
  Age: 79 Year
  Sex: Female

DRUGS (10)
  1. DURAGESIC [Suspect]
     Indication: PAIN
     Dosage: 50 UG/HR, 1 IN 72 HOUR, TRANSDERMAL
     Route: 062
     Dates: start: 20020101
  2. SULFASALAZINE [Concomitant]
  3. ARAVA [Concomitant]
  4. TOPROL-XL [Concomitant]
  5. DIGOXIN [Concomitant]
  6. PREVACID (LANSOPRAZOLE) TABLETS [Concomitant]
  7. ACTONEL (RISEDRONATE SODIUM) TABLETS [Concomitant]
  8. SYNTHROID (LEVOTHYROXINE SODIUM) TABLETS [Concomitant]
  9. CYCLOBENZATRINE (CYCLOBENZAPRINE) TABLETS [Concomitant]
  10. CYTOMEL (LIOTHYROXINE SODIUM) TABLETS [Concomitant]

REACTIONS (4)
  - INADEQUATE ANALGESIA [None]
  - PHARMACEUTICAL PRODUCT COMPLAINT [None]
  - REFUSAL OF TREATMENT BY PATIENT [None]
  - ROAD TRAFFIC ACCIDENT [None]
